FAERS Safety Report 6898362-9 (Version None)
Quarter: 2010Q3

REPORT INFORMATION
  Report Type: 
  Country: None (occurrence: None)
  Receive Date: 20100802
  Receipt Date: 20071011
  Transmission Date: 20110219
  Serious: Yes (Other)
  Sender: FDA-Public Use
  Company Number: US-PFIZER INC-2007064732

PATIENT
  Sex: Male
  Weight: 71.2 kg

DRUGS (5)
  1. LYRICA [Suspect]
     Indication: PAIN IN EXTREMITY
     Dates: start: 20070101, end: 20070101
  2. LIPITOR [Concomitant]
  3. CARDIOVASCULAR SYSTEM DRUGS [Concomitant]
  4. MUSCLE RELAXANTS [Concomitant]
  5. OPHTHALMOLOGICALS [Concomitant]

REACTIONS (4)
  - HALLUCINATION [None]
  - ILL-DEFINED DISORDER [None]
  - MIDDLE INSOMNIA [None]
  - REFLEXES ABNORMAL [None]
